FAERS Safety Report 4414584-0 (Version None)
Quarter: 2004Q2

REPORT INFORMATION
  Report Type: 
  Country: None (occurrence: None)
  Receive Date: 20040621
  Receipt Date: 20031201
  Transmission Date: 20050107
  Serious: Yes (Death)
  Sender: FDA-Public Use
  Company Number: USA-2003-0012039

PATIENT
  Age: 43 Year
  Sex: Male

DRUGS (2)
  1. OXYCODONE HCL [Suspect]
  2. ETHANOL (ETHANOL) [Suspect]

REACTIONS (2)
  - ACCIDENTAL OVERDOSE [None]
  - MULTIPLE DRUG OVERDOSE [None]
